FAERS Safety Report 9209711 (Version 1)
Quarter: 2013Q2

REPORT INFORMATION
  Report Type: Spontaneous
  Country: FR (occurrence: FR)
  Receive Date: 20130404
  Receipt Date: 20130404
  Transmission Date: 20140414
  Serious: Yes (Hospitalization)
  Sender: FDA-Public Use
  Company Number: FR-JNJFOC-20130316942

PATIENT
  Age: 88 Year
  Sex: Male

DRUGS (6)
  1. HALDOL [Suspect]
     Indication: AGITATION
     Route: 048
     Dates: start: 20120926, end: 20121001
  2. LYRICA [Suspect]
     Indication: BACK PAIN
     Route: 048
     Dates: start: 20120926, end: 20121001
  3. ACTISKENAN [Suspect]
     Indication: BACK PAIN
     Route: 048
     Dates: start: 20120926, end: 20121001
  4. STABLON [Concomitant]
     Indication: PRODUCT USED FOR UNKNOWN INDICATION
     Route: 065
     Dates: start: 201012
  5. UN-ALFA [Concomitant]
     Indication: PRODUCT USED FOR UNKNOWN INDICATION
     Dosage: 3 TIMES WEEKLY
     Route: 048
  6. AMLODIPINE [Concomitant]
     Indication: PRODUCT USED FOR UNKNOWN INDICATION
     Route: 048

REACTIONS (2)
  - Coma [Recovered/Resolved]
  - Clonus [Recovered/Resolved]
